FAERS Safety Report 6318264-6 (Version None)
Quarter: 2009Q3

REPORT INFORMATION
  Report Type: 
  Country: None (occurrence: None)
  Receive Date: 20090821
  Receipt Date: 20090817
  Transmission Date: 20100115
  Serious: Yes (Hospitalization)
  Sender: FDA-Public Use
  Company Number: US-ASTRAZENECA-2009SE08374

PATIENT
  Sex: Male

DRUGS (1)
  1. ZESTORETIC [Suspect]
     Indication: BLOOD PRESSURE
     Route: 048

REACTIONS (1)
  - STAPHYLOCOCCAL INFECTION [None]
